FAERS Safety Report 7262317-5 (Version None)
Quarter: 2011Q1

REPORT INFORMATION
  Report Type: 
  Country: None (occurrence: None)
  Receive Date: 20110119
  Receipt Date: 20110111
  Transmission Date: 20110831
  Serious: Yes (Other)
  Sender: FDA-Public Use
  Company Number: JPI-P-013449

PATIENT
  Age: 50 Year
  Sex: Female
  Weight: 64.4108 kg

DRUGS (3)
  1. MILNACIPRAN HYDROCHLORIDE [Concomitant]
  2. DULOXETINE HYDROCHLORIDE [Concomitant]
  3. XYREM [Suspect]
     Indication: FIBROMYALGIA
     Dosage: 9 GM (4.5 GM, 2 IN 1 D), ORAL
     Route: 048
     Dates: start: 20100608

REACTIONS (3)
  - BREAST CANCER FEMALE [None]
  - ANXIETY [None]
  - WEIGHT INCREASED [None]
